FAERS Safety Report 6503475-7 (Version None)
Quarter: 2009Q4

REPORT INFORMATION
  Report Type: 
  Country: None (occurrence: None)
  Receive Date: 20091217
  Receipt Date: 20091209
  Transmission Date: 20100525
  Serious: Yes (Other)
  Sender: FDA-Public Use
  Company Number: JP-BAYER-200942058GPV

PATIENT
  Age: 65 Year
  Sex: Male

DRUGS (2)
  1. SORAFENIB [Suspect]
     Indication: RENAL CELL CARCINOMA
  2. SORAFENIB [Suspect]

REACTIONS (1)
  - ACUTE MYOCARDIAL INFARCTION [None]
